FAERS Safety Report 4973692-6 (Version None)
Quarter: 2006Q2

REPORT INFORMATION
  Report Type: 
  Country: None (occurrence: None)
  Receive Date: 20060414
  Receipt Date: 20051222
  Transmission Date: 20061013
  Serious: Yes (Death, Hospitalization, Disabling, Other)
  Sender: FDA-Public Use
  Company Number: US-MERCK-0512USA03658

PATIENT
  Age: 64 Year
  Sex: Female
  Weight: 132 kg

DRUGS (14)
  1. VIOXX [Suspect]
     Indication: ARTHRITIS
     Route: 048
     Dates: start: 20000404, end: 20000907
  2. METHOTREXATE [Concomitant]
     Route: 048
     Dates: start: 19970101, end: 20000101
  3. ULTRAM [Concomitant]
     Route: 065
     Dates: start: 20000101
  4. PROPOXYPHENE NAPSYLATE [Concomitant]
     Route: 065
  5. ZESTRIL [Concomitant]
     Route: 065
  6. MERIDIA [Concomitant]
     Route: 065
  7. CEPHALEXIN [Concomitant]
     Route: 065
  8. HYDROCHLOROTHIAZIDE [Concomitant]
     Route: 048
  9. AMITRIPTYLINE HYDROCHLORIDE [Concomitant]
     Route: 048
  10. PREVACID [Concomitant]
     Route: 048
  11. PLENDIL [Concomitant]
     Route: 048
     Dates: start: 19920101, end: 20000101
  12. DARVOCET [Concomitant]
     Route: 065
  13. LASIX [Concomitant]
     Route: 048
  14. DYAZIDE [Concomitant]
     Route: 065

REACTIONS (12)
  - ABDOMINAL PAIN UPPER [None]
  - APHASIA [None]
  - CEREBROVASCULAR ACCIDENT [None]
  - DEPRESSION [None]
  - EMBOLISM [None]
  - FALL [None]
  - IRRITABLE BOWEL SYNDROME [None]
  - NEPHROLITHIASIS [None]
  - PNEUMONIA [None]
  - RESPIRATORY FAILURE [None]
  - TREATMENT NONCOMPLIANCE [None]
  - URINARY TRACT INFECTION [None]
